FAERS Safety Report 4323152-0 (Version None)
Quarter: 2004Q1

REPORT INFORMATION
  Report Type: 
  Country: None (occurrence: None)
  Receive Date: 20040322
  Receipt Date: 20040304
  Transmission Date: 20041129
  Serious: Yes (Other)
  Sender: FDA-Public Use
  Company Number: S04-USA-01393-01

PATIENT
  Sex: Male

DRUGS (3)
  1. NAMENDA [Suspect]
     Dosage: 10 MG QD PO
     Route: 048
  2. NAMENDA [Suspect]
     Dosage: 5 MG QD PO
     Route: 048
  3. NAMENDA [Suspect]
     Dosage: 5 MG QD PO
     Route: 048

REACTIONS (1)
  - COMPLEX PARTIAL SEIZURES [None]
